FAERS Safety Report 11322002 (Version 2)
Quarter: 2015Q3

REPORT INFORMATION
  Report Type: Report from Study
  Country: AU (occurrence: AU)
  Receive Date: 20150729
  Receipt Date: 20150924
  Transmission Date: 20151125
  Serious: Yes (Other)
  Sender: FDA-Public Use
  Company Number: PHHY2015AU082653

PATIENT
  Age: 42 Year
  Sex: Male

DRUGS (2)
  1. CLOZARIL [Suspect]
     Active Substance: CLOZAPINE
     Indication: SCHIZOPHRENIA
     Dosage: 550 OT, UNK
     Route: 048
     Dates: start: 20100608
  2. CLOZARIL [Suspect]
     Active Substance: CLOZAPINE
     Dosage: 500 OT, UNK
     Route: 048

REACTIONS (8)
  - Skin ulcer [Unknown]
  - Monocyte count increased [Unknown]
  - Eosinophil count increased [Unknown]
  - Road traffic accident [Unknown]
  - Monocytosis [Recovered/Resolved]
  - Microcytic anaemia [Unknown]
  - Red blood cell count decreased [Unknown]
  - Haemorrhage [Unknown]

NARRATIVE: CASE EVENT DATE: 20150609
